FAERS Safety Report 13070918 (Version 2)
Quarter: 2017Q1

REPORT INFORMATION
  Report Type: Report from Study
  Country: PA (occurrence: PA)
  Receive Date: 20161229
  Receipt Date: 20170111
  Transmission Date: 20170428
  Serious: Yes (Hospitalization)
  Sender: FDA-Public Use
  Company Number: PHHY2016PA002986

PATIENT
  Age: 90 Year
  Sex: Female

DRUGS (2)
  1. INDAPAMIDE. [Suspect]
     Active Substance: INDAPAMIDE
     Indication: HYPERTENSION
     Dosage: UNK
     Route: 065
  2. EXELON PATCH [Suspect]
     Active Substance: RIVASTIGMINE
     Indication: DEMENTIA ALZHEIMER^S TYPE
     Dosage: 9.5 MG, QD (PATCH 10)
     Route: 062
     Dates: start: 2012

REACTIONS (8)
  - Infection [Recovered/Resolved]
  - Hypertension [Recovered/Resolved]
  - Erythema [Recovered/Resolved]
  - Face oedema [Recovered/Resolved]
  - White blood cell count abnormal [Recovered/Resolved]
  - Somnolence [Recovered/Resolved]
  - Malaise [Unknown]
  - Swelling face [Unknown]

NARRATIVE: CASE EVENT DATE: 201611
